FAERS Safety Report 14224126 (Version 1)
Quarter: 2017Q4

REPORT INFORMATION
  Report Type: Spontaneous
  Country: US (occurrence: US)
  Receive Date: 20171126
  Receipt Date: 20171126
  Transmission Date: 20180321
  Serious: No
  Sender: FDA-Public Use
  Company Number: PHEH2017US038061

PATIENT
  Sex: Male

DRUGS (1)
  1. TASIGNA [Suspect]
     Active Substance: NILOTINIB
     Indication: MYELOID LEUKAEMIA
     Dosage: 600 MG, QD (400 AM AND 200 PM)
     Route: 048
     Dates: start: 20160316

REACTIONS (3)
  - Decreased appetite [Unknown]
  - Fatigue [Unknown]
  - Asthenia [Unknown]
